FAERS Safety Report 4280005-4 (Version None)
Quarter: 2004Q1

REPORT INFORMATION
  Report Type: 
  Country: None (occurrence: None)
  Receive Date: 20040126
  Receipt Date: 20031122
  Transmission Date: 20041129
  Serious: Yes (Death)
  Sender: FDA-Public Use
  Company Number: 2003AP04336

PATIENT
  Age: 73 Year
  Sex: Male

DRUGS (1)
  1. XYLOCAINE [Suspect]
     Indication: ARRHYTHMIA
     Dosage: 1 G DAILY IV
     Route: 042
     Dates: start: 20031115, end: 20031115

REACTIONS (2)
  - CARDIAC ARREST [None]
  - MEDICATION ERROR [None]
